FAERS Safety Report 6658948-3 (Version None)
Quarter: 2010Q1

REPORT INFORMATION
  Report Type: 
  Country: None (occurrence: None)
  Receive Date: 20100330
  Receipt Date: 20100315
  Transmission Date: 20100710
  Serious: No
  Sender: FDA-Public Use
  Company Number: US-BIOGENIDEC-2010BI008718

PATIENT
  Age: 36 Year
  Sex: Female

DRUGS (2)
  1. TYSABRI [Suspect]
     Indication: MULTIPLE SCLEROSIS
     Route: 042
     Dates: start: 20071213, end: 20090901
  2. TYSABRI [Suspect]
     Route: 042
     Dates: start: 20090901

REACTIONS (5)
  - DISTURBANCE IN SOCIAL BEHAVIOUR [None]
  - MEMORY IMPAIRMENT [None]
  - MULTIPLE SCLEROSIS [None]
  - PERIPHERAL COLDNESS [None]
  - SOLILOQUY [None]
